FAERS Safety Report 4934854-7 (Version None)
Quarter: 2006Q1

REPORT INFORMATION
  Report Type: 
  Country: None (occurrence: None)
  Receive Date: 20060302
  Receipt Date: 20060217
  Transmission Date: 20060701
  Serious: Yes (Other)
  Sender: FDA-Public Use
  Company Number: 2006-138730-NL

PATIENT
  Age: 44 Year
  Sex: Female
  Weight: 51.3 kg

DRUGS (6)
  1. NUVARING [Suspect]
     Indication: CONTRACEPTION
     Dosage: VAGINAL, 3 WEEKS IN /1 WEEK OUT
     Route: 067
     Dates: start: 20051229
  2. PREDNISONE [Concomitant]
  3. DHEA [Concomitant]
  4. ESSENTIAL FATTY ACIDS [Concomitant]
  5. ACID REDUCER [Concomitant]
  6. ANTI INFLAMMATORY [Concomitant]

REACTIONS (6)
  - CONDITION AGGRAVATED [None]
  - METRORRHAGIA [None]
  - PLEURISY [None]
  - RHEUMATOID ARTHRITIS [None]
  - SYSTEMIC LUPUS ERYTHEMATOSUS [None]
  - TREATMENT NONCOMPLIANCE [None]
